FAERS Safety Report 4738861-9 (Version None)
Quarter: 2005Q3

REPORT INFORMATION
  Report Type: 
  Country: None (occurrence: None)
  Receive Date: 20050804
  Receipt Date: 20050726
  Transmission Date: 20060218
  Serious: Yes (Hospitalization)
  Sender: FDA-Public Use
  Company Number: 2005106833

PATIENT
  Age: 76 Year
  Sex: Female
  Weight: 70 kg

DRUGS (17)
  1. ATORVASTATIN CALCIUM [Suspect]
     Indication: ILL-DEFINED DISORDER
     Dosage: 10 MG (1 IN 1 D), ORAL
     Route: 048
     Dates: end: 20050516
  2. NEURONTIN [Suspect]
     Indication: ILL-DEFINED DISORDER
     Dosage: 300 MG (100 MG, 3 IN 1 D)
     Dates: end: 20050516
  3. NEURONTIN [Suspect]
     Indication: ILL-DEFINED DISORDER
     Dosage: 300 MG (100 MG, 3 IN 1 D)
     Dates: end: 20050513
  4. ACYCLOVIR [Suspect]
     Indication: ILL-DEFINED DISORDER
     Dosage: 2100 MG (700 MG, 3 IN 1 D), INTRAVENOUS
     Route: 042
     Dates: start: 20050513, end: 20030516
  5. AUGMENTIN '125' [Suspect]
     Indication: ILL-DEFINED DISORDER
     Dosage: 3 GRAM (1 GRAM, 3 IN 1 D), ORAL
     Route: 048
     Dates: start: 20050513, end: 20050516
  6. DIAMICRON (GLICLAZIDE) [Suspect]
     Indication: ILL-DEFINED DISORDER
     Dosage: 2 DOSE FORMS (1 D), ORAL
     Route: 048
     Dates: end: 20050516
  7. OFLOXACIN [Suspect]
     Indication: ILL-DEFINED DISORDER
     Dosage: 400 MG (200 MG, 2 IN 1 D), ORAL
     Route: 048
     Dates: start: 20050513, end: 20050516
  8. DEPAKENE [Concomitant]
  9. PREVISCAN (FLUNDIONE) [Concomitant]
  10. OMEPRAZOLE [Concomitant]
  11. LEVOTHYROXINE SODIUM [Concomitant]
  12. MEDIATOR (BENFLUOREX HYDROCHLORIDE) [Concomitant]
  13. MYOLASTAN (TETRAZEPAM) [Concomitant]
  14. DIGOXIN [Concomitant]
  15. DI-ANTALVIC 9DEXTROPROPOXYPHENE HYDROCHLORIDE, PARACETAMOL) [Concomitant]
  16. KETOPROFEN [Concomitant]
  17. ANALGESICS (ANALGESICS) [Concomitant]

REACTIONS (14)
  - BACK PAIN [None]
  - BLOOD PRESSURE INCREASED [None]
  - CEREBELLAR SYNDROME [None]
  - CHOLESTASIS [None]
  - CONFUSIONAL STATE [None]
  - CYTOLYTIC HEPATITIS [None]
  - DYSPHAGIA [None]
  - DYSSTASIA [None]
  - ENCEPHALITIS HERPES [None]
  - GENERAL PHYSICAL HEALTH DETERIORATION [None]
  - LIPASE INCREASED [None]
  - LUNG DISORDER [None]
  - PYREXIA [None]
  - URINARY RETENTION [None]
